FAERS Safety Report 10247849 (Version 1)
Quarter: 2014Q2

REPORT INFORMATION
  Report Type: Spontaneous
  Country: CA (occurrence: CA)
  Receive Date: 20140619
  Receipt Date: 20140619
  Transmission Date: 20141212
  Serious: Yes (Other)
  Sender: FDA-Public Use
  Company Number: CA-ALLERGAN-1413785US

PATIENT
  Sex: Female

DRUGS (1)
  1. VANIQA [Suspect]
     Indication: HAIR GROWTH ABNORMAL
     Dosage: UNK, TWICE A DAY

REACTIONS (5)
  - Coma [Unknown]
  - Fall [Unknown]
  - Eye haemorrhage [Unknown]
  - Headache [Unknown]
  - Drug ineffective [Unknown]
